FAERS Safety Report 5159032-0 (Version None)
Quarter: 2006Q4

REPORT INFORMATION
  Report Type: 
  Country: None (occurrence: None)
  Receive Date: 20061117
  Receipt Date: 20061106
  Transmission Date: 20070319
  Serious: Yes (Hospitalization)
  Sender: FDA-Public Use
  Company Number: A-JP2006-13454

PATIENT
  Age: 70 Year
  Sex: Female

DRUGS (13)
  1. TRACLEER [Suspect]
     Indication: PULMONARY HYPERTENSION
     Dosage: 62.5 MG, BID; ORAL
     Route: 048
     Dates: start: 20060905, end: 20061031
  2. OLMESARTAN (OLMESARTAN) [Suspect]
     Dates: start: 20061006, end: 20061104
  3. ASPIRIN [Concomitant]
  4. SARPOGRELATE [Concomitant]
  5. RABAPRAZOLE SODIUM [Concomitant]
  6. TRICHLORMETHIAZIDE [Concomitant]
  7. PREDNISOLONE [Concomitant]
  8. AMLODIPIN (AMLODIPINE BESILATE) [Concomitant]
  9. BERAPROST SODIUM [Concomitant]
  10. LEVOTHYROXINE SODIUM [Concomitant]
  11. LOXOPROFEN [Concomitant]
  12. TEPRENONE [Concomitant]
  13. ASPARTATE POTASSIUM [Concomitant]

REACTIONS (2)
  - ALANINE AMINOTRANSFERASE INCREASED [None]
  - ASPARTATE AMINOTRANSFERASE INCREASED [None]
